FAERS Safety Report 24437239 (Version 1)
Quarter: 2024Q4

REPORT INFORMATION
  Report Type: Spontaneous
  Country: CH (occurrence: CH)
  Receive Date: 20241015
  Receipt Date: 20241015
  Transmission Date: 20250115
  Serious: Yes (Other)
  Sender: SANDOZ
  Company Number: None

PATIENT
  Age: 77 Year
  Sex: Male
  Weight: 61 kg

DRUGS (6)
  1. ZOLEDRONIC ACID ANHYDROUS [Suspect]
     Active Substance: ZOLEDRONIC ACID ANHYDROUS
     Indication: Osteoporosis
     Dosage: 5 MG
     Route: 040
     Dates: start: 20240515, end: 20240515
  2. Amlodipin Valsartan Zentiva [Concomitant]
     Indication: Hypertension
     Dosage: 1 CELLS N/A DOSE EVERY 1 DAY
     Route: 048
     Dates: start: 2022
  3. Esomups [Concomitant]
     Indication: Gastrooesophageal reflux disease
     Dosage: 40 MG N/A DOSE EVERY 1 DAY
     Route: 048
     Dates: start: 2017
  4. DALFAMPRIDINE [Concomitant]
     Active Substance: DALFAMPRIDINE
     Indication: Multiple sclerosis
     Dosage: 10 MG N/A DOSE EVERY 12 HOUR
     Route: 048
     Dates: start: 2023
  5. CALCIUM CARBONATE\CHOLECALCIFEROL [Concomitant]
     Active Substance: CALCIUM CARBONATE\CHOLECALCIFEROL
     Indication: Osteoporosis
     Route: 048
     Dates: start: 2022
  6. Mydocalm [Concomitant]
     Indication: Muscle spasticity
     Dosage: 150 MG N/A DOSE EVERY 1 DAY
     Route: 048
     Dates: start: 2018

REACTIONS (1)
  - Multiple sclerosis relapse [Recovering/Resolving]

NARRATIVE: CASE EVENT DATE: 20240516
